FAERS Safety Report 8437165-0 (Version None)
Quarter: 2012Q2

REPORT INFORMATION
  Report Type: 
  Country: None (occurrence: None)
  Receive Date: 20120614
  Receipt Date: 20120306
  Transmission Date: 20120825
  Serious: No
  Sender: FDA-Public Use
  Company Number: US-AMGEN-USASP2011037102

PATIENT
  Age: 54 Year
  Sex: Male
  Weight: 107.94 kg

DRUGS (12)
  1. LORAZEPAM [Concomitant]
     Dosage: 1 MG, QD
  2. PAXIL [Concomitant]
     Dosage: UNK UNK, QD
  3. VITAMIN D [Concomitant]
     Dosage: 3 IU, QD
  4. ZANTAC [Concomitant]
     Dosage: 1 MG, Q12H
  5. VESICARE [Concomitant]
     Dosage: 1 MG, QD
  6. XGEVA [Suspect]
     Indication: METASTASES TO BONE
     Dosage: 120 MG, Q4WK
     Dates: start: 20110621
  7. SIMVASTATIN [Concomitant]
     Dosage: UNK UNK, QD
  8. TRICOR [Concomitant]
     Dosage: 1 MG, QD
  9. LORAZEPAM [Concomitant]
     Dosage: 3 MG, QD
  10. KETOCONAZOLE [Concomitant]
     Dosage: UNK UNK, Q12H
  11. TAMSULOSIN HCL [Concomitant]
     Dosage: UNK UNK, QD
  12. NASONEX [Concomitant]
     Dosage: UNK UNK, QD

REACTIONS (1)
  - TOOTH ABSCESS [None]
